FAERS Safety Report 15744550 (Version 1)
Quarter: 2018Q4

REPORT INFORMATION
  Report Type: Spontaneous
  Country: US (occurrence: US)
  Receive Date: 20181220
  Receipt Date: 20181220
  Transmission Date: 20190205
  Serious: Yes (Other)
  Sender: FDA-Public Use
  Company Number: US-MALLINCKRODT-T201800768

PATIENT
  Age: 73 Year
  Sex: Female
  Weight: 126 kg

DRUGS (1)
  1. FENTANYL TRANSDERMAL SYSTEM [Suspect]
     Active Substance: FENTANYL
     Indication: PAIN
     Dosage: 25 MCG, EVERY 3 DAYS
     Route: 062
     Dates: end: 201801

REACTIONS (11)
  - Expired product administered [Unknown]
  - Blood pressure increased [Unknown]
  - Morbid thoughts [Unknown]
  - Diarrhoea [Unknown]
  - Malaise [Unknown]
  - Tinnitus [Unknown]
  - Vision blurred [Recovering/Resolving]
  - Cholelithiasis [Unknown]
  - Weight decreased [Unknown]
  - Insomnia [Unknown]
  - Palpitations [Unknown]

NARRATIVE: CASE EVENT DATE: 20180209
